FAERS Safety Report 22961026 (Version 2)
Quarter: 2023Q4

REPORT INFORMATION
  Report Type: Spontaneous
  Country: AU (occurrence: AU)
  Receive Date: 20230920
  Receipt Date: 20231023
  Transmission Date: 20240110
  Serious: Yes (Other)
  Sender: FDA-Public Use
  Company Number: AU-BAXTER-2023BAX031157

PATIENT
  Sex: Male

DRUGS (12)
  1. DOXORUBICIN [Suspect]
     Active Substance: DOXORUBICIN
     Indication: Central nervous system lymphoma
     Dosage: UNK, AS A PART OF RCHOP REGIMEN WITH COMPLETE RESPONSE(2022)
     Route: 065
  2. DOXORUBICIN [Suspect]
     Active Substance: DOXORUBICIN
     Indication: Disease recurrence
  3. CYCLOPHOSPHAMIDE [Suspect]
     Active Substance: CYCLOPHOSPHAMIDE
     Indication: Central nervous system lymphoma
     Dosage: UNK, AS A PART OF RCHOP REGIMEN WITH COMPLETE RESPONSE(2022)
     Route: 065
  4. CYCLOPHOSPHAMIDE [Suspect]
     Active Substance: CYCLOPHOSPHAMIDE
     Indication: Disease recurrence
  5. VINCRISTINE [Suspect]
     Active Substance: VINCRISTINE
     Indication: Central nervous system lymphoma
     Dosage: UNK, AS A PART OF RCHOP REGIMEN WITH COMPLETE RESPONSE(2022)
     Route: 065
  6. VINCRISTINE [Suspect]
     Active Substance: VINCRISTINE
     Indication: Disease recurrence
  7. PREDNISONE [Suspect]
     Active Substance: PREDNISONE
     Indication: Central nervous system lymphoma
     Dosage: UNK, AS A PART OF RCHOP REGIMEN WITH COMPLETE RESPONSE(2022)
     Route: 065
  8. PREDNISONE [Suspect]
     Active Substance: PREDNISONE
     Indication: Disease recurrence
  9. RITUXIMAB [Suspect]
     Active Substance: RITUXIMAB
     Indication: Central nervous system lymphoma
     Dosage: UNK, AS A PART OF RCHOP REGIMEN WITH COMPLETE RESPONSE(2022)
     Route: 065
  10. RITUXIMAB [Suspect]
     Active Substance: RITUXIMAB
     Indication: Disease recurrence
  11. METHOTREXATE [Suspect]
     Active Substance: METHOTREXATE
     Indication: Central nervous system lymphoma
     Dosage: UNK, COMPLETE RESPONSE(2022)
     Route: 037
  12. METHOTREXATE [Suspect]
     Active Substance: METHOTREXATE
     Indication: Disease recurrence

REACTIONS (2)
  - Central nervous system lymphoma [Unknown]
  - Disease recurrence [Unknown]
